FAERS Safety Report 24241796 (Version 1)
Quarter: 2024Q3

REPORT INFORMATION
  Report Type: Spontaneous
  Country: BR (occurrence: BR)
  Receive Date: 20240823
  Receipt Date: 20240823
  Transmission Date: 20241017
  Serious: Yes (Hospitalization)
  Sender: AMGEN
  Company Number: BR-AMGEN-BRASP2024141508

PATIENT
  Age: 33 Year
  Sex: Male
  Weight: 64 kg

DRUGS (1)
  1. BLINCYTO [Suspect]
     Active Substance: BLINATUMOMAB
     Indication: B precursor type acute leukaemia
     Dosage: 28 MICROGRAM
     Route: 042
     Dates: start: 20240610

REACTIONS (1)
  - B-cell type acute leukaemia [Recovered/Resolved]

NARRATIVE: CASE EVENT DATE: 20240711
